FAERS Safety Report 6505252-X (Version None)
Quarter: 2009Q4

REPORT INFORMATION
  Report Type: 
  Country: None (occurrence: None)
  Receive Date: 20091216
  Receipt Date: 20091130
  Transmission Date: 20100525
  Serious: Yes (Other)
  Sender: FDA-Public Use
  Company Number: 2009BI017618

PATIENT
  Age: 56 Year
  Sex: Female

DRUGS (12)
  1. ZEVALIN [Suspect]
     Indication: FOLLICLE CENTRE LYMPHOMA, FOLLICULAR GRADE I, II, III STAGE III
     Dosage: 770 MBQ;1X;IV
     Route: 042
     Dates: start: 20081104, end: 20081111
  2. RITUXIMAB [Concomitant]
  3. LOXONIN [Concomitant]
  4. POLARAMINE [Concomitant]
  5. FLUDARA [Concomitant]
  6. MITOXANTRONE [Concomitant]
  7. DEXAMETHASONE [Concomitant]
  8. CYCLOPHOSPHAMIDE [Concomitant]
  9. DOXORUBICIN HCL [Concomitant]
  10. VINCRISTINE [Concomitant]
  11. PREDNISOLONE [Concomitant]
  12. FLUDEOXYGLUCOSE (18F) [Concomitant]

REACTIONS (3)
  - BONE MARROW FAILURE [None]
  - DIZZINESS [None]
  - NAUSEA [None]
